FAERS Safety Report 19099835 (Version 6)
Quarter: 2021Q4

REPORT INFORMATION
  Report Type: Report from Study
  Country: JP (occurrence: JP)
  Receive Date: 20210406
  Receipt Date: 20211103
  Transmission Date: 20220303
  Serious: Yes (Hospitalization)
  Sender: FDA-Public Use
  Company Number: JP-MYOVANT SCIENCES GMBH-2021MYSCI0300219

PATIENT
  Age: 39 Year
  Sex: Female

DRUGS (2)
  1. RELUGOLIX [Suspect]
     Active Substance: RELUGOLIX
     Indication: Uterine leiomyoma
     Dosage: 40 MILLIGRAM, QD
     Route: 048
     Dates: start: 20210104, end: 20210401
  2. DILAZEP [Concomitant]
     Active Substance: DILAZEP
     Indication: IgA nephropathy
     Dosage: 40 MILLIGRAM
     Route: 048

REACTIONS (1)
  - Intermenstrual bleeding [Recovering/Resolving]

NARRATIVE: CASE EVENT DATE: 20210314
